FAERS Safety Report 9312703 (Version 1)
Quarter: 2013Q2

REPORT INFORMATION
  Report Type: Spontaneous
  Country: IT (occurrence: IT)
  Receive Date: 20130528
  Receipt Date: 20130528
  Transmission Date: 20140414
  Serious: Yes (Other)
  Sender: FDA-Public Use
  Company Number: IT-MYLANLABS-2013S1010675

PATIENT
  Age: 78 Year
  Sex: Male

DRUGS (2)
  1. FUROSEMIDE [Suspect]
     Indication: GRAVITATIONAL OEDEMA
     Route: 048
     Dates: start: 20130403, end: 20130408
  2. ALLOPURINOL [Suspect]
     Indication: HYPERURICAEMIA
     Route: 048
     Dates: start: 20130403, end: 20130407

REACTIONS (1)
  - Tongue oedema [Recovered/Resolved]
